FAERS Safety Report 8126517-4 (Version None)
Quarter: 2012Q1

REPORT INFORMATION
  Report Type: 
  Country: None (occurrence: None)
  Receive Date: 20120209
  Receipt Date: 20120201
  Transmission Date: 20120608
  Serious: Yes (Hospitalization)
  Sender: FDA-Public Use
  Company Number: US-ASTRAZENECA-2012SE07330

PATIENT
  Sex: Female

DRUGS (1)
  1. NEXIUM [Suspect]
     Route: 048

REACTIONS (5)
  - COLONIC POLYP [None]
  - MALAISE [None]
  - DRUG DOSE OMISSION [None]
  - GASTRIC POLYPS [None]
  - GASTROINTESTINAL ULCER [None]
